FAERS Safety Report 13715355 (Version 1)
Quarter: 2017Q3

REPORT INFORMATION
  Report Type: Spontaneous
  Country: GB (occurrence: GB)
  Receive Date: 20170704
  Receipt Date: 20170704
  Transmission Date: 20171127
  Serious: Yes (Other)
  Sender: FDA-Public Use
  Company Number: GB-TEVA-781799ACC

PATIENT
  Age: 72 Year
  Sex: Male

DRUGS (8)
  1. MIRTAZAPINE. [Suspect]
     Active Substance: MIRTAZAPINE
     Indication: GLIOBLASTOMA MULTIFORME
     Dosage: PRESCRIBED DOSE: 15 MG EVERY NIGHT. 15MG/ML TOOK 15ML.
     Dates: start: 20170520, end: 20170520
  2. SENNA [Concomitant]
     Active Substance: SENNA LEAF\SENNOSIDES\SENNOSIDES A AND B
  3. OMEPRAZOLE. [Concomitant]
     Active Substance: OMEPRAZOLE
  4. METFORMIN [Concomitant]
     Active Substance: METFORMIN HYDROCHLORIDE
     Dosage: 2 GRAM DAILY;
  5. DEXAMETHASONE. [Concomitant]
     Active Substance: DEXAMETHASONE
     Dosage: 4 MILLIGRAM DAILY;
  6. GLICLAZIDE [Concomitant]
     Active Substance: GLICLAZIDE
     Dosage: 120 MILLIGRAM DAILY; 80 MG IN THE MORNING, 40 MG AT LUNCH TIME
  7. MIRTAZAPINE. [Suspect]
     Active Substance: MIRTAZAPINE
     Indication: GLIOBLASTOMA MULTIFORME
     Dosage: 15 MILLIGRAM DAILY; EACH NIGHT
  8. MAGNESIUM HYDROXIDE. [Concomitant]
     Active Substance: MAGNESIUM HYDROXIDE

REACTIONS (2)
  - Accidental overdose [Unknown]
  - Therapeutic response unexpected [Unknown]
